FAERS Safety Report 24074383 (Version 1)
Quarter: 2024Q3

REPORT INFORMATION
  Report Type: Spontaneous
  Country: US (occurrence: US)
  Receive Date: 20240710
  Receipt Date: 20240710
  Transmission Date: 20241016
  Serious: No
  Sender: TEVA
  Company Number: US-TEVA-VS-3217367

PATIENT
  Age: 37 Year
  Sex: Male

DRUGS (1)
  1. UZEDY [Suspect]
     Active Substance: RISPERIDONE
     Indication: Product used for unknown indication
     Dosage: 100/0.28 MG/ML
     Route: 058
     Dates: end: 20240503

REACTIONS (4)
  - Sedation [Unknown]
  - Hypoaesthesia [Unknown]
  - Product dose omission issue [Unknown]
  - Apathy [Unknown]
